FAERS Safety Report 24075777 (Version 1)
Quarter: 2024Q3

REPORT INFORMATION
  Report Type: Spontaneous
  Country: GB (occurrence: GB)
  Receive Date: 20240710
  Receipt Date: 20240710
  Transmission Date: 20241017
  Serious: Yes (Other)
  Sender: RANBAXY
  Company Number: GB-SUN PHARMACEUTICAL INDUSTRIES LTD-2024R1-455944

PATIENT
  Sex: Female
  Weight: 2.415 kg

DRUGS (9)
  1. CISPLATIN [Suspect]
     Active Substance: CISPLATIN
     Indication: Neoplasm
     Dosage: 50 MILLIGRAM/SQ. METER (DAY 1,2,3)
     Route: 064
  2. CYCLIZINE [Suspect]
     Active Substance: CYCLIZINE
     Indication: Neoplasm
     Dosage: UNK
     Route: 064
  3. INDOMETHACIN [Suspect]
     Active Substance: INDOMETHACIN
     Indication: Neoplasm
     Dosage: 100 MILLIGRAM, BID
     Route: 064
  4. DEXAMETHASONE [Suspect]
     Active Substance: DEXAMETHASONE
     Indication: Neoplasm
     Dosage: UNK
     Route: 064
  5. METOCLOPRAMIDE [Suspect]
     Active Substance: METOCLOPRAMIDE
     Indication: Neoplasm
     Dosage: UNK
     Route: 064
  6. PACLITAXEL [Suspect]
     Active Substance: PACLITAXEL
     Indication: Neoplasm
     Dosage: 175 MILLIGRAM/SQ. METER
     Route: 064
  7. PALONOSETRON [Suspect]
     Active Substance: PALONOSETRON
     Indication: Neoplasm
     Dosage: UNK
     Route: 064
  8. ETOPOSIDE [Suspect]
     Active Substance: ETOPOSIDE
     Indication: Neoplasm
     Dosage: 165 MILLIGRAM/SQ. METER
     Route: 064
  9. FILGRASTIM [Suspect]
     Active Substance: FILGRASTIM
     Indication: Neoplasm
     Dosage: UNK
     Route: 064

REACTIONS (3)
  - Premature baby [Unknown]
  - Low birth weight baby [Unknown]
  - Foetal exposure during pregnancy [Unknown]
